FAERS Safety Report 7918127-6 (Version None)
Quarter: 2011Q4

REPORT INFORMATION
  Report Type: 
  Country: None (occurrence: None)
  Receive Date: 20111114
  Receipt Date: 20111107
  Transmission Date: 20120403
  Serious: Yes (Life-Threatening, Hospitalization)
  Sender: FDA-Public Use
  Company Number: 2011SP049119

PATIENT
  Age: 85 Year
  Sex: Male
  Weight: 48 kg

DRUGS (8)
  1. REMERON [Suspect]
     Indication: DEPRESSION
     Dosage: 45 MG; QD; PO
     Route: 048
     Dates: start: 20100701, end: 20111002
  2. ALOSEN (SENNOSIDE A, B) [Concomitant]
  3. DAI-KENCHU-TO [Concomitant]
  4. PALNAC [Concomitant]
  5. LOXONIN (LOXOPROGEN SODIUM HYDRATE) [Concomitant]
  6. MAGNSEIUM OXIDE [Concomitant]
  7. RISPERDAL [Concomitant]
  8. ZOLPIDEM [Concomitant]

REACTIONS (3)
  - APATHY [None]
  - DECREASED APPETITE [None]
  - INAPPROPRIATE ANTIDIURETIC HORMONE SECRETION [None]
